FAERS Safety Report 19313658 (Version 8)
Quarter: 2022Q1

REPORT INFORMATION
  Report Type: Other
  Country: GB (occurrence: GB)
  Receive Date: 20210527
  Receipt Date: 20220107
  Transmission Date: 20220423
  Serious: Yes (Hospitalization, Other)
  Sender: FDA-Public Use
  Company Number: GB-JNJFOC-20210226049

PATIENT
  Age: 81 Year
  Sex: Male

DRUGS (18)
  1. PREDNISOLONE [Suspect]
     Active Substance: PREDNISOLONE
     Indication: Prostate cancer
     Dosage: 5 MILLIGRAM, QD
     Route: 048
     Dates: start: 20210113
  2. ABIRATERONE ACETATE [Suspect]
     Active Substance: ABIRATERONE ACETATE
     Indication: Prostate cancer
     Dosage: 1000 MILLIGRAM QD TABLET
     Route: 048
     Dates: start: 20210113, end: 20211118
  3. ABIRATERONE ACETATE [Suspect]
     Active Substance: ABIRATERONE ACETATE
     Dosage: 1000 MILLIGRAM, QD TABLET
     Route: 048
     Dates: start: 20210113, end: 20211118
  4. ABIRATERONE ACETATE [Suspect]
     Active Substance: ABIRATERONE ACETATE
     Dosage: UNK
     Route: 048
  5. ABIRATERONE ACETATE [Suspect]
     Active Substance: ABIRATERONE ACETATE
     Dosage: UNK
     Route: 048
  6. ABIRATERONE ACETATE [Suspect]
     Active Substance: ABIRATERONE ACETATE
     Dosage: 1000 MILLIGRAM
     Route: 048
  7. ABIRATERONE ACETATE [Suspect]
     Active Substance: ABIRATERONE ACETATE
     Dosage: 1000 MILLIGRAM UNK (12 MAY 2021 00:00)
     Route: 048
  8. ABIRATERONE ACETATE [Suspect]
     Active Substance: ABIRATERONE ACETATE
     Dosage: 1000 MILLIGRAM QD TABLET
     Route: 048
     Dates: start: 20210113
  9. ABIRATERONE ACETATE [Suspect]
     Active Substance: ABIRATERONE ACETATE
     Dosage: 1000 MILLIGRAM QD TABLET
     Route: 048
     Dates: start: 20210113
  10. INDAPAMIDE [Suspect]
     Active Substance: INDAPAMIDE
     Indication: Hypertension
     Dosage: 2.5 MILLIGRAM; UNK
     Route: 065
     Dates: start: 202106
  11. AMLODIPINE [Concomitant]
     Active Substance: AMLODIPINE BESYLATE
     Indication: Hypertension
     Dosage: UNK
     Route: 048
  12. DEGARELIX [Concomitant]
     Active Substance: DEGARELIX
     Indication: Hormone therapy
     Dosage: 80 MILLIGRAM, ONCE A MONTH
     Route: 058
  13. DEGARELIX [Concomitant]
     Active Substance: DEGARELIX
     Dosage: UNK UNK, ONCE A MONTH
     Route: 058
  14. DEGARELIX [Concomitant]
     Active Substance: DEGARELIX
     Dosage: 80 MILLIGRAM, UNK
     Route: 058
  15. LERCANIDIPINE [Concomitant]
     Active Substance: LERCANIDIPINE
     Indication: Hypertension
     Dosage: 10 MILLIGRAM, QD
     Route: 048
  16. LERCANIDIPINE [Concomitant]
     Active Substance: LERCANIDIPINE
     Dosage: UNK, QD
     Route: 048
  17. LERCANIDIPINE [Concomitant]
     Active Substance: LERCANIDIPINE
     Dosage: 10 MILLIGRAM QD
     Route: 048
  18. ORAMORPH SR SUSTAINED RELEASE [Concomitant]
     Active Substance: MORPHINE SULFATE
     Indication: Pain
     Dosage: UNK
     Route: 048

REACTIONS (19)
  - Pruritus [Unknown]
  - Alanine aminotransferase increased [Unknown]
  - Peripheral swelling [Recovered/Resolved]
  - Abdominal discomfort [Unknown]
  - Paraesthesia [Unknown]
  - Feeling cold [Unknown]
  - Rash pruritic [Unknown]
  - Blood bilirubin increased [Recovered/Resolved]
  - Joint swelling [Recovered/Resolved]
  - Chest pain [Recovered/Resolved]
  - Musculoskeletal chest pain [Recovered/Resolved]
  - Metastases to spine [Not Recovered/Not Resolved]
  - Pain in extremity [Not Recovered/Not Resolved]
  - Back pain [Not Recovered/Not Resolved]
  - Chest pain [Not Recovered/Not Resolved]
  - Oedema peripheral [Not Recovered/Not Resolved]
  - Spinal cord compression [Recovered/Resolved]
  - Oedema peripheral [Not Recovered/Not Resolved]
  - Blood potassium decreased [Unknown]

NARRATIVE: CASE EVENT DATE: 20210101
